FAERS Safety Report 8947572 (Version 3)
Quarter: 2013Q1

REPORT INFORMATION
  Report Type: Spontaneous
  Country: SE (occurrence: SE)
  Receive Date: 20121204
  Receipt Date: 20130312
  Transmission Date: 20140127
  Serious: Yes (Hospitalization)
  Sender: FDA-Public Use
  Company Number: SE-ROCHE-1162092

PATIENT
  Age: 73 Year
  Sex: Female

DRUGS (4)
  1. MABTHERA [Suspect]
     Indication: RHEUMATOID ARTHRITIS
     Route: 042
     Dates: start: 20110512
  2. MABTHERA [Suspect]
     Route: 041
     Dates: start: 20121001
  3. METOTREXAT [Concomitant]
  4. PREDNISOLON [Concomitant]

REACTIONS (1)
  - Pulmonary embolism [Not Recovered/Not Resolved]
